FAERS Safety Report 18079095 (Version 1)
Quarter: 2020Q3

REPORT INFORMATION
  Report Type: Spontaneous
  Country: US (occurrence: US)
  Receive Date: 20200727
  Receipt Date: 20200727
  Transmission Date: 20201103
  Serious: Yes (Hospitalization)
  Sender: FDA-Public Use
  Company Number: None

PATIENT
  Age: 32 Year
  Sex: Female
  Weight: 81 kg

DRUGS (1)
  1. BORN BASIC. ANTI?BAC HAND SANITIZER 65 PERCENT [Suspect]
     Active Substance: ALCOHOL
     Indication: INFECTION PROPHYLAXIS
     Dates: start: 20200512, end: 20200527

REACTIONS (5)
  - Alcohol poisoning [None]
  - Migraine [None]
  - Nausea [None]
  - Headache [None]
  - Recalled product administered [None]

NARRATIVE: CASE EVENT DATE: 20200527
